FAERS Safety Report 8804483 (Version 4)
Quarter: 2013Q3

REPORT INFORMATION
  Report Type: Spontaneous
  Country: US (occurrence: US)
  Receive Date: 20120923
  Receipt Date: 20130808
  Transmission Date: 20140515
  Serious: No
  Sender: FDA-Public Use
  Company Number: US-009507513-1209USA005709

PATIENT
  Age: 48 Year
  Sex: Female

DRUGS (3)
  1. PEG-INTRON [Suspect]
     Indication: HEPATITIS C
     Dosage: REDIPEN
     Dates: start: 20120828
  2. REBETOL [Suspect]
     Indication: HEPATITIS C
     Dosage: UNK
     Route: 048
     Dates: start: 20120828
  3. VICTRELIS [Suspect]
     Indication: HEPATITIS C
     Dosage: UNK
     Route: 048
     Dates: start: 20120925

REACTIONS (38)
  - Nausea [Unknown]
  - Drug dose omission [Unknown]
  - Decreased appetite [Unknown]
  - Dysgeusia [Unknown]
  - Diarrhoea [Unknown]
  - Gastrointestinal disorder [Unknown]
  - Parosmia [Unknown]
  - Chills [Unknown]
  - Pyrexia [Unknown]
  - Insomnia [Unknown]
  - Weight decreased [Unknown]
  - Rash [Unknown]
  - Dry skin [Unknown]
  - Pruritus [Unknown]
  - Alopecia [Unknown]
  - Hair texture abnormal [Unknown]
  - Eye pruritus [Unknown]
  - Dyspnoea [Unknown]
  - Depression [Unknown]
  - Vertigo [Unknown]
  - Wheezing [Unknown]
  - Influenza [Unknown]
  - Tobacco user [Unknown]
  - Weight decreased [Unknown]
  - Anger [Unknown]
  - Memory impairment [Unknown]
  - Influenza [Unknown]
  - Skin lesion [Unknown]
  - Pruritus [Unknown]
  - Anorectal discomfort [Unknown]
  - Anal pruritus [Unknown]
  - Depression [Unknown]
  - Headache [Unknown]
  - Asthenia [Unknown]
  - Diarrhoea [Unknown]
  - Fatigue [Unknown]
  - Dry skin [Unknown]
  - Dysgeusia [Unknown]
